FAERS Safety Report 14229853 (Version 1)
Quarter: 2017Q4

REPORT INFORMATION
  Report Type: Spontaneous
  Country: US (occurrence: US)
  Receive Date: 20171128
  Receipt Date: 20171128
  Transmission Date: 20180321
  Serious: No
  Sender: FDA-Public Use
  Company Number: US-ANTARES PHARMA, INC.-2016-LIT-ME-0372

PATIENT
  Age: 45 Year
  Sex: Female

DRUGS (2)
  1. METHOTREXATE. [Suspect]
     Active Substance: METHOTREXATE
     Indication: MULTIPLE SCLEROSIS
  2. METHOTREXATE. [Suspect]
     Active Substance: METHOTREXATE
     Indication: OFF LABEL USE
     Dosage: UNK
     Route: 042

REACTIONS (2)
  - Off label use [Unknown]
  - Pneumonia [Unknown]
